FAERS Safety Report 10150328 (Version 3)
Quarter: 2014Q2

REPORT INFORMATION
  Report Type: Report from Study
  Country: AU (occurrence: AU)
  Receive Date: 20140502
  Receipt Date: 20140515
  Transmission Date: 20141212
  Serious: Yes (Life-Threatening, Hospitalization)
  Sender: FDA-Public Use
  Company Number: AU-BRISTOL-MYERS SQUIBB COMPANY-20651204

PATIENT
  Age: 59 Year
  Sex: Female

DRUGS (7)
  1. ORENCIA [Suspect]
     Indication: RHEUMATOID ARTHRITIS
     Route: 042
     Dates: start: 20080122
  2. METHOTREXATE [Concomitant]
  3. PREDNISOLONE [Concomitant]
  4. TRAMADOL [Concomitant]
  5. ALLEGRON [Concomitant]
  6. SOMAC [Concomitant]
  7. PANADOL [Concomitant]

REACTIONS (2)
  - Gastric ulcer haemorrhage [Recovered/Resolved with Sequelae]
  - Pyloric stenosis [Unknown]
